FAERS Safety Report 8662213 (Version 2)
Quarter: 2012Q4

REPORT INFORMATION
  Report Type: Report from Study
  Country: US (occurrence: US)
  Receive Date: 20120712
  Receipt Date: 20121017
  Transmission Date: 20130627
  Serious: Yes (Other)
  Sender: FDA-Public Use
  Company Number: US-ABBOTT-12P-163-0953155-00

PATIENT
  Sex: Female

DRUGS (1)
  1. HUMIRA 40 MG/ 0.8 ML PRE-FILLED SYRINGE [Suspect]
     Indication: RHEUMATOID ARTHRITIS
     Dosage: Weekly
     Route: 058
     Dates: start: 200710

REACTIONS (3)
  - Nodule [Unknown]
  - Rheumatoid arthritis [Unknown]
  - Inappropriate schedule of drug administration [Unknown]
